FAERS Safety Report 17323076 (Version 1)
Quarter: 2020Q1

REPORT INFORMATION
  Report Type: Spontaneous
  Country: US (occurrence: US)
  Receive Date: 20200127
  Receipt Date: 20200127
  Transmission Date: 20200409
  Serious: No
  Sender: FDA-Public Use
  Company Number: US-ACORDA-ACO_30394_2012

PATIENT
  Sex: Female

DRUGS (4)
  1. AVONEX [Suspect]
     Active Substance: INTERFERON BETA-1A
     Indication: MULTIPLE SCLEROSIS
     Dosage: SOLUTION FOR INJECTION IN PRE-FILLED SYRINGE 30 MICROGRAM
     Route: 030
     Dates: start: 1997
  2. AVONEX [Suspect]
     Active Substance: INTERFERON BETA-1A
     Dosage: SOLUTION FOR INJECTION IN PRE-FILLED SYRINGE 30 MICROGRAM ONCE A WEEK
     Route: 030
     Dates: start: 200501
  3. AMPYRA [Suspect]
     Active Substance: DALFAMPRIDINE
     Indication: GAIT DISTURBANCE
     Dosage: 10 MG, BID
     Route: 065
     Dates: start: 201008
  4. AVONEX [Suspect]
     Active Substance: INTERFERON BETA-1A
     Dosage: SOLUTION FOR INJECTION IN PRE-FILLED SYRINGE 30 MICROGRAM ONCE A WEEK
     Route: 030

REACTIONS (1)
  - Influenza like illness [Recovered/Resolved]

NARRATIVE: CASE EVENT DATE: 2013
